FAERS Safety Report 19245071 (Version 1)
Quarter: 2021Q2

REPORT INFORMATION
  Report Type: Report from Study
  Country: BR (occurrence: BR)
  Receive Date: 20210511
  Receipt Date: 20210511
  Transmission Date: 20210717
  Serious: Yes (Other)
  Sender: FDA-Public Use
  Company Number: BR-TEVA-2021-BR-1911938

PATIENT
  Age: 46 Year
  Sex: Female

DRUGS (5)
  1. PREGABALIN. [Concomitant]
     Active Substance: PREGABALIN
  2. DULOXETINE. [Concomitant]
     Active Substance: DULOXETINE
  3. SELOZOK [Concomitant]
     Active Substance: METOPROLOL SUCCINATE
  4. COPAXONE [Suspect]
     Active Substance: GLATIRAMER ACETATE
     Indication: MULTIPLE SCLEROSIS
  5. ELIQUIS [Concomitant]
     Active Substance: APIXABAN

REACTIONS (43)
  - Cerebrovascular accident [Unknown]
  - Multiple sclerosis [Not Recovered/Not Resolved]
  - Condition aggravated [Not Recovered/Not Resolved]
  - Chills [Unknown]
  - Fatigue [Not Recovered/Not Resolved]
  - Pain [Not Recovered/Not Resolved]
  - Feeling cold [Unknown]
  - Vomiting [Recovered/Resolved]
  - Aortic aneurysm [Unknown]
  - Abdominal pain [Unknown]
  - Inappropriate schedule of product administration [Unknown]
  - Discomfort [Recovered/Resolved]
  - Cerebral atrophy [Not Recovered/Not Resolved]
  - Tachycardia [Recovered/Resolved]
  - Injection site discolouration [Recovered/Resolved]
  - Injection site inflammation [Recovered/Resolved]
  - Muscle spasms [Recovered/Resolved]
  - Myocardial infarction [Unknown]
  - Discomfort [Not Recovered/Not Resolved]
  - Injection site haematoma [Recovered/Resolved]
  - Product dose omission issue [Unknown]
  - Drug ineffective [Unknown]
  - Injection site haemorrhage [Recovered/Resolved]
  - Feeling abnormal [Not Recovered/Not Resolved]
  - Bradykinesia [Not Recovered/Not Resolved]
  - Injection site erythema [Unknown]
  - Paraesthesia [Not Recovered/Not Resolved]
  - Condition aggravated [Not Recovered/Not Resolved]
  - Confusional state [Unknown]
  - Injection site pruritus [Recovered/Resolved]
  - Limb discomfort [Not Recovered/Not Resolved]
  - Injection site pain [Unknown]
  - Self esteem decreased [Not Recovered/Not Resolved]
  - Head discomfort [Not Recovered/Not Resolved]
  - Loss of personal independence in daily activities [Not Recovered/Not Resolved]
  - Urinary incontinence [Unknown]
  - Amnesia [Recovered/Resolved]
  - Memory impairment [Not Recovered/Not Resolved]
  - Burning sensation [Not Recovered/Not Resolved]
  - Injection site nodule [Not Recovered/Not Resolved]
  - Frustration tolerance decreased [Unknown]
  - Musculoskeletal stiffness [Not Recovered/Not Resolved]
  - Tremor [Unknown]

NARRATIVE: CASE EVENT DATE: 2020
